FAERS Safety Report 23005444 (Version 2)
Quarter: 2023Q4

REPORT INFORMATION
  Report Type: Spontaneous
  Country: US (occurrence: US)
  Receive Date: 20230929
  Receipt Date: 20231107
  Transmission Date: 20240110
  Serious: No
  Sender: FDA-Public Use
  Company Number: US-TOLMAR, INC.-23US043261

PATIENT
  Sex: Male

DRUGS (3)
  1. ELIGARD [Suspect]
     Active Substance: LEUPROLIDE ACETATE
     Indication: Product used for unknown indication
     Dosage: 45 MILLIGRAM
     Route: 058
     Dates: start: 20230912
  2. ELIGARD [Suspect]
     Active Substance: LEUPROLIDE ACETATE
     Dosage: 45 MILLIGRAM
     Route: 058
  3. DEVICE [Suspect]
     Active Substance: DEVICE
     Indication: Product used for unknown indication
     Dosage: UNK

REACTIONS (5)
  - Wrong technique in product usage process [Unknown]
  - Intercepted product preparation error [Unknown]
  - Device leakage [Unknown]
  - Syringe issue [Unknown]
  - Device connection issue [Unknown]

NARRATIVE: CASE EVENT DATE: 20230912
